FAERS Safety Report 18990460 (Version 2)
Quarter: 2021Q1

REPORT INFORMATION
  Report Type: Spontaneous
  Country: US (occurrence: US)
  Receive Date: 20210310
  Receipt Date: 20210326
  Transmission Date: 20210420
  Serious: Yes (Other)
  Sender: FDA-Public Use
  Company Number: US-ABBVIE-21K-163-3804111-00

PATIENT
  Age: 70 Year
  Sex: Male
  Weight: 75.82 kg

DRUGS (3)
  1. ANDROGEL [Suspect]
     Active Substance: TESTOSTERONE
     Indication: BLOOD TESTOSTERONE DECREASED
     Dosage: ANDROGEL PUMP
     Route: 061
     Dates: start: 2011, end: 202012
  2. ARMOUR THYROID [Concomitant]
     Active Substance: THYROID, PORCINE
     Indication: HYPOTHYROIDISM
  3. ANDROGEL [Suspect]
     Active Substance: TESTOSTERONE
     Dosage: FOUR PUMPS A DAY
     Route: 061
     Dates: start: 202012, end: 2021

REACTIONS (7)
  - Cognitive disorder [Not Recovered/Not Resolved]
  - Agitation [Not Recovered/Not Resolved]
  - Hunger [Not Recovered/Not Resolved]
  - Fatigue [Not Recovered/Not Resolved]
  - Cellulitis orbital [Recovering/Resolving]
  - Insomnia [Not Recovered/Not Resolved]
  - Asthenia [Not Recovered/Not Resolved]

NARRATIVE: CASE EVENT DATE: 20201005
